FAERS Safety Report 7474904-X (Version None)
Quarter: 2011Q2

REPORT INFORMATION
  Report Type: 
  Country: None (occurrence: None)
  Receive Date: 20110505
  Receipt Date: 20110414
  Transmission Date: 20111010
  Serious: Yes (Other)
  Sender: FDA-Public Use
  Company Number: TOR 2011-0023

PATIENT
  Age: 36 Year
  Sex: Female

DRUGS (1)
  1. TOREMIFENE (TOREMIFENE) [Suspect]
     Indication: BREAST CANCER
     Dosage: 40 MG/DAY
     Dates: end: 20051001

REACTIONS (3)
  - MACULAR CYST [None]
  - RETINAL DISORDER [None]
  - MACULAR HOLE [None]
